FAERS Safety Report 23430908 (Version 1)
Quarter: 2024Q1

REPORT INFORMATION
  Report Type: Spontaneous
  Country: US (occurrence: US)
  Receive Date: 20240123
  Receipt Date: 20240123
  Transmission Date: 20240409
  Serious: Yes (Hospitalization)
  Sender: FDA-Public Use
  Company Number: US-ORG100016242-2024000027

PATIENT
  Age: 4 Year
  Sex: Male

DRUGS (1)
  1. EXPAREL [Suspect]
     Active Substance: BUPIVACAINE
     Indication: Appendicectomy
     Route: 050

REACTIONS (3)
  - Accidental overdose [Unknown]
  - Off label use [Unknown]
  - No adverse event [Unknown]
